FAERS Safety Report 11797300 (Version 1)
Quarter: 2015Q4

REPORT INFORMATION
  Report Type: Spontaneous
  Country: None (occurrence: GB)
  Receive Date: 20151203
  Receipt Date: 20151203
  Transmission Date: 20160305
  Serious: Yes (Life-Threatening)
  Sender: FDA-Public Use
  Company Number: GB-B. BRAUN MEDICAL INC.-1045004

PATIENT
  Age: 52 Year
  Sex: Male
  Weight: 82 kg

DRUGS (4)
  1. KEFLEX [Suspect]
     Active Substance: CEPHALEXIN
  2. METRONIDAZOLE. [Suspect]
     Active Substance: METRONIDAZOLE
     Dates: start: 20150529
  3. SIMVASTATIN. [Concomitant]
     Active Substance: SIMVASTATIN
     Dates: start: 20140404
  4. FEXOFENADINE [Concomitant]
     Active Substance: FEXOFENADINE\FEXOFENADINE HYDROCHLORIDE
     Dates: start: 20140404

REACTIONS (2)
  - Bradycardia [Unknown]
  - Rash [Recovered/Resolved]

NARRATIVE: CASE EVENT DATE: 20151110
